FAERS Safety Report 7585378-2 (Version None)
Quarter: 2011Q3

REPORT INFORMATION
  Report Type: 
  Country: None (occurrence: None)
  Receive Date: 20110701
  Receipt Date: 20091226
  Transmission Date: 20111222
  Serious: Yes (Death, Other)
  Sender: FDA-Public Use
  Company Number: US-BAYER-200943306NA

PATIENT
  Age: 57 Year
  Sex: Male
  Weight: 108.84 kg

DRUGS (29)
  1. MIDAZOLAM HCL [Concomitant]
     Dosage: UNK
     Route: 042
     Dates: start: 20041222, end: 20041222
  2. LASIX [Concomitant]
     Dosage: 40 MG, QD
     Route: 048
  3. TOPROL-XL [Concomitant]
     Dosage: 50-100 MG DAILY
     Route: 048
  4. POTASSIUM [POTASSIUM] [Concomitant]
     Dosage: 20 MEQ, QD
     Route: 048
  5. ANCEF [Concomitant]
     Dosage: 2 G, UNK
     Route: 042
     Dates: start: 20041222, end: 20041222
  6. PAVULON [Concomitant]
     Dosage: UNK
     Route: 042
     Dates: start: 20041222, end: 20041222
  7. PLAVIX [Concomitant]
     Dosage: 75 MG, QD
     Route: 048
  8. DIGOXIN [Concomitant]
     Dosage: 0.25 MG, QD
     Route: 048
  9. NITROGLYCERIN [Concomitant]
     Dosage: UNK
     Route: 042
     Dates: start: 20041222
  10. BREVIBLOCK [Concomitant]
     Dosage: 30 MG, UNK
     Route: 042
     Dates: start: 20041222, end: 20041222
  11. PACKED RED BLOOD CELLS [Concomitant]
     Dosage: 2 U, UNK
     Dates: start: 20041222
  12. TRASYLOL [Suspect]
     Indication: AORTIC VALVE REPLACEMENT
     Dosage: 1 ML, ONCE (INITIAL)
     Route: 042
     Dates: start: 20041222, end: 20041222
  13. TRASYLOL [Suspect]
     Dosage: 50 ML/HR (INFUSION)
     Route: 042
     Dates: start: 20041222, end: 20041222
  14. HEPARIN [Concomitant]
     Dosage: UNK
     Route: 042
     Dates: start: 20041222, end: 20041222
  15. PROTAMINE SULFATE [Concomitant]
     Dosage: 350 MG, UNK
     Route: 042
     Dates: start: 20041222, end: 20041222
  16. TRASYLOL [Suspect]
     Indication: CORONARY ARTERY BYPASS
     Dosage: 200 ML (LOADING)
     Route: 042
     Dates: start: 20041222, end: 20041222
  17. COUMADIN [Concomitant]
     Route: 048
  18. ZOCOR [Concomitant]
     Dosage: 80 MG, QD
     Route: 048
  19. LISINOPRIL [Concomitant]
     Dosage: 30 MG, QD
     Route: 048
  20. ISOFLURANE [Concomitant]
     Dosage: UNK
     Route: 055
     Dates: start: 20041222, end: 20041222
  21. CARDIZEM [Concomitant]
     Dosage: TITRATED
     Route: 042
     Dates: start: 20041222
  22. FRESH FROZEN PLASMA [Concomitant]
     Dosage: 2 U, UNK
     Dates: start: 20041222
  23. PRILOSEC [Concomitant]
     Route: 048
  24. COLCHICINE [Concomitant]
     Dosage: 100 MG, QD
     Route: 048
  25. OPTIRAY [IODINE,IOVERSOL] [Concomitant]
     Dosage: 100 ML, UNK
     Route: 042
     Dates: start: 20041220
  26. TRASYLOL [Suspect]
     Indication: CARDIAC OPERATION
     Dosage: 200 ML (PUMP PRIME)
     Route: 042
     Dates: start: 20041222, end: 20041222
  27. SUFENTANIL CITRATE [Concomitant]
     Dosage: UNK
     Route: 042
     Dates: start: 20041222, end: 20041222
  28. PHENYLEPHRINE HCL [Concomitant]
     Dosage: UNK
     Route: 042
     Dates: start: 20041222
  29. IBUPROFEN [Concomitant]
     Dosage: 400 MG, TID
     Route: 048
     Dates: start: 20041230, end: 20050103

REACTIONS (7)
  - RENAL INJURY [None]
  - INJURY [None]
  - DEATH [None]
  - PAIN [None]
  - UNEVALUABLE EVENT [None]
  - RENAL FAILURE ACUTE [None]
  - RENAL FAILURE [None]
